FAERS Safety Report 8524237 (Version 7)
Quarter: 2013Q3

REPORT INFORMATION
  Report Type: Spontaneous
  Country: FR (occurrence: FR)
  Receive Date: 20120420
  Receipt Date: 20130910
  Transmission Date: 20140515
  Serious: Yes (Other)
  Sender: FDA-Public Use
  Company Number: FR-JNJFOC-20120407576

PATIENT
  Sex: Male
  Weight: 91 kg

DRUGS (2)
  1. EPITOMAX [Suspect]
     Indication: EPILEPSY
     Dosage: THE START DATE WAS MORE THAN 15 YEARS
     Route: 048
     Dates: end: 20110104
  2. TEGRETOL [Concomitant]

REACTIONS (2)
  - Dyspnoea [Unknown]
  - Cardiac disorder [Unknown]
